FAERS Safety Report 6546368-1 (Version None)
Quarter: 2010Q1

REPORT INFORMATION
  Report Type: 
  Country: None (occurrence: None)
  Receive Date: 20100114
  Receipt Date: 20091113
  Transmission Date: 20100710
  Serious: No
  Sender: FDA-Public Use
  Company Number: 2009BM000310

PATIENT
  Age: 42 Year
  Sex: Male
  Weight: 101 kg

DRUGS (4)
  1. KUVAN [Suspect]
     Indication: PHENYLKETONURIA
     Dosage: 2000 MG;QD;PO
     Route: 048
     Dates: start: 20091021
  2. RANITIDINE HCL [Concomitant]
  3. LISINOPRIL [Concomitant]
  4. COMBIVENT [Concomitant]

REACTIONS (4)
  - INFLUENZA [None]
  - LOWER RESPIRATORY TRACT INFECTION [None]
  - PAIN [None]
  - PYREXIA [None]
